FAERS Safety Report 9912543 (Version 1)
Quarter: 2014Q1

REPORT INFORMATION
  Report Type: Spontaneous
  Country: FR (occurrence: FR)
  Receive Date: 20140220
  Receipt Date: 20140220
  Transmission Date: 20141002
  Serious: Yes (Hospitalization)
  Sender: FDA-Public Use
  Company Number: FR-ROCHE-1350271

PATIENT
  Age: 91 Year
  Sex: Male

DRUGS (5)
  1. ROCEPHINE [Suspect]
     Indication: INFECTION
     Route: 042
     Dates: start: 20130501, end: 20130503
  2. KARDEGIC [Suspect]
     Indication: PRODUCT USED FOR UNKNOWN INDICATION
     Dosage: 75 MG
     Route: 048
     Dates: end: 20130514
  3. LASILIX [Suspect]
     Indication: PRODUCT USED FOR UNKNOWN INDICATION
     Dosage: 40 MG
     Route: 048
     Dates: start: 20130311, end: 20130514
  4. AUGMENTIN [Suspect]
     Indication: PRODUCT USED FOR UNKNOWN INDICATION
     Route: 065
     Dates: start: 20130501, end: 20130503
  5. ZYLORIC [Suspect]
     Indication: PRODUCT USED FOR UNKNOWN INDICATION
     Dosage: 100 MG
     Route: 048
     Dates: end: 20130515

REACTIONS (1)
  - Purpura [Recovering/Resolving]
